FAERS Safety Report 5466816-8 (Version None)
Quarter: 2007Q3

REPORT INFORMATION
  Report Type: 
  Country: None (occurrence: None)
  Receive Date: 20070925
  Receipt Date: 20070918
  Transmission Date: 20080115
  Serious: Yes (Hospitalization)
  Sender: FDA-Public Use
  Company Number: US-JNJFOC-20070703301

PATIENT
  Sex: Female
  Weight: 91.17 kg

DRUGS (5)
  1. REMICADE [Suspect]
     Route: 042
  2. REMICADE [Suspect]
     Indication: RHEUMATOID ARTHRITIS
     Route: 042
  3. BENADRYL [Concomitant]
     Indication: PROPHYLAXIS
     Route: 042
  4. SOLU-CORTEF [Concomitant]
     Indication: PROPHYLAXIS
     Route: 042
  5. TYLENOL (CAPLET) [Concomitant]
     Indication: PROPHYLAXIS
     Route: 048

REACTIONS (7)
  - CHEST DISCOMFORT [None]
  - DIZZINESS [None]
  - DYSPNOEA [None]
  - INFUSION RELATED REACTION [None]
  - THROAT TIGHTNESS [None]
  - UROSEPSIS [None]
  - VISION BLURRED [None]
